FAERS Safety Report 11398027 (Version 1)
Quarter: 2015Q3

REPORT INFORMATION
  Report Type: Spontaneous
  Country: NZ (occurrence: NZ)
  Receive Date: 20150820
  Receipt Date: 20150820
  Transmission Date: 20151125
  Serious: Yes (Other)
  Sender: FDA-Public Use
  Company Number: PHHY2015NZ096872

PATIENT
  Age: 12 Year
  Sex: Male
  Weight: 47 kg

DRUGS (3)
  1. ITRACONAZOLE. [Suspect]
     Active Substance: ITRACONAZOLE
     Indication: ASPERGILLUS INFECTION
     Dosage: 100 MG, BID
     Route: 048
  2. BUDESONIDE. [Suspect]
     Active Substance: BUDESONIDE
     Indication: NASAL POLYPS
     Dosage: 100 UG, BID
     Route: 006
  3. FLUTICASONE [Suspect]
     Active Substance: FLUTICASONE\FLUTICASONE PROPIONATE
     Indication: PULMONARY FUNCTION TEST
     Dosage: 125 UG, BID
     Route: 055

REACTIONS (3)
  - Failure to thrive [Recovered/Resolved]
  - Drug interaction [Unknown]
  - Adrenal suppression [Recovered/Resolved]
